FAERS Safety Report 23080151 (Version 1)
Quarter: 2023Q4

REPORT INFORMATION
  Report Type: Spontaneous
  Country: TR (occurrence: TR)
  Receive Date: 20231018
  Receipt Date: 20231018
  Transmission Date: 20240110
  Serious: Yes (Hospitalization, Other)
  Sender: FDA-Public Use
  Company Number: TR-PFIZER INC-PV202300163507

PATIENT
  Age: 52 Year
  Sex: Female

DRUGS (1)
  1. METHYLPREDNISOLONE ACETATE [Suspect]
     Active Substance: METHYLPREDNISOLONE ACETATE
     Indication: Sarcoidosis
     Dosage: 32 MG, DAILY

REACTIONS (4)
  - Adrenal insufficiency [Unknown]
  - Rebound psychosis [Unknown]
  - Off label use [Unknown]
  - Drug effective for unapproved indication [Unknown]
